FAERS Safety Report 15837934 (Version 1)
Quarter: 2019Q1

REPORT INFORMATION
  Report Type: Spontaneous
  Country: US (occurrence: US)
  Receive Date: 20190117
  Receipt Date: 20190117
  Transmission Date: 20190417
  Serious: No
  Sender: FDA-Public Use
  Company Number: US-DUSA PHARMACEUTICALS, INC.-2061337

PATIENT
  Sex: Female

DRUGS (2)
  1. LEVULAN KERASTICK [Suspect]
     Active Substance: AMINOLEVULINIC ACID HYDROCHLORIDE
     Indication: ACTINIC KERATOSIS
     Route: 061
     Dates: start: 201802, end: 201802
  2. BLU-U LIGHT (BLU-U BLUE LIGHT PHOTODYNAMIC THERAPY ILLUMINATOR) [Suspect]
     Active Substance: DEVICE

REACTIONS (10)
  - Psoriasis [Unknown]
  - Photosensitivity reaction [Unknown]
  - Dermatitis psoriasiform [Unknown]
  - Incorrect dose administered [None]
  - Skin reaction [Unknown]
  - Off label use [Unknown]
  - Rash macular [Recovered/Resolved]
  - Pruritus [Recovered/Resolved]
  - Scab [Unknown]
  - Scar [Unknown]

NARRATIVE: CASE EVENT DATE: 2018
